FAERS Safety Report 9835498 (Version 2)
Quarter: 2014Q1

REPORT INFORMATION
  Report Type: Spontaneous
  Country: US (occurrence: US)
  Receive Date: 20140122
  Receipt Date: 20140122
  Transmission Date: 20141002
  Serious: No
  Sender: FDA-Public Use
  Company Number: US-BRISTOL-MYERS SQUIBB COMPANY-19705136

PATIENT
  Age: 87 Year
  Sex: Male
  Weight: 68.03 kg

DRUGS (5)
  1. ELIQUIS [Suspect]
     Indication: ATRIAL FIBRILLATION
     Dosage: 2.5MG IN MRNG AND 2.5MG IN EVENING.
     Route: 048
  2. CELEBREX [Concomitant]
  3. FINASTERIDE [Concomitant]
  4. DOXAZOSIN [Concomitant]
  5. SIMVASTATIN [Concomitant]

REACTIONS (1)
  - Drug prescribing error [Unknown]
